FAERS Safety Report 24143176 (Version 1)
Quarter: 2024Q3

REPORT INFORMATION
  Report Type: Spontaneous
  Country: CN (occurrence: CN)
  Receive Date: 20240726
  Receipt Date: 20240726
  Transmission Date: 20241017
  Serious: Yes (Hospitalization)
  Sender: ELI LILLY AND CO
  Company Number: CN-ELI_LILLY_AND_COMPANY-CN202407016685

PATIENT

DRUGS (1)
  1. BARICITINIB [Suspect]
     Active Substance: BARICITINIB
     Indication: COVID-19
     Dosage: UNK, UNKNOWN
     Route: 065

REACTIONS (1)
  - Pancreatic enzymes increased [Unknown]
